FAERS Safety Report 14876087 (Version 1)
Quarter: 2018Q2

REPORT INFORMATION
  Report Type: Spontaneous
  Country: US (occurrence: US)
  Receive Date: 20180510
  Receipt Date: 20180510
  Transmission Date: 20180711
  Serious: Yes (Other)
  Sender: FDA-Public Use
  Company Number: US-SA-2018SA129156

PATIENT
  Age: 81 Year
  Sex: Female
  Weight: 63.5 kg

DRUGS (6)
  1. PLAVIX [Suspect]
     Active Substance: CLOPIDOGREL BISULFATE
     Route: 048
  2. ASPIRIN. [Suspect]
     Active Substance: ASPIRIN
     Route: 065
  3. OMEGA 3 [Suspect]
     Active Substance: OMEGA-3 FATTY ACIDS
     Dosage: DOSAGE FORM: RAPID RELEASE SOFT GEL.
     Route: 048
  4. XARELTO [Suspect]
     Active Substance: RIVAROXABAN
     Route: 048
  5. BIOTIN [Suspect]
     Active Substance: BIOTIN
     Route: 048
  6. NIACINAMIDE [Suspect]
     Active Substance: NIACINAMIDE
     Route: 048

REACTIONS (5)
  - Arterial therapeutic procedure [Unknown]
  - Cardiac pacemaker insertion [Unknown]
  - Knee operation [Unknown]
  - Hip surgery [Unknown]
  - Haemorrhage [Unknown]

NARRATIVE: CASE EVENT DATE: 20150629
